FAERS Safety Report 6834112-X (Version None)
Quarter: 2010Q3

REPORT INFORMATION
  Report Type: 
  Country: None (occurrence: None)
  Receive Date: 20100712
  Receipt Date: 20070423
  Transmission Date: 20110219
  Serious: No
  Sender: FDA-Public Use
  Company Number: US-PFIZER INC-2007033252

PATIENT
  Sex: Male
  Weight: 84 kg

DRUGS (8)
  1. CHANTIX [Suspect]
     Indication: SMOKING CESSATION THERAPY
     Dates: start: 20070401
  2. DRUG, UNSPECIFIED [Suspect]
  3. FORADIL [Concomitant]
  4. PULMICORT [Concomitant]
  5. ALBUTEROL [Concomitant]
  6. SPIRIVA [Concomitant]
  7. PRAVACHOL [Concomitant]
     Indication: BLOOD CHOLESTEROL ABNORMAL
  8. DOXAZOSIN [Concomitant]
     Indication: PROSTATIC DISORDER

REACTIONS (2)
  - DIARRHOEA [None]
  - DYSGEUSIA [None]
